FAERS Safety Report 13093177 (Version 1)
Quarter: 2017Q1

REPORT INFORMATION
  Report Type: Spontaneous
  Country: IT (occurrence: IT)
  Receive Date: 20170106
  Receipt Date: 20170106
  Transmission Date: 20170428
  Serious: Yes (Hospitalization)
  Sender: FDA-Public Use
  Company Number: IT-FRESENIUS KABI-FK201700096

PATIENT
  Age: 44 Year
  Sex: Female

DRUGS (3)
  1. ADENOSINE INJECTION (MANUFACTURER UNKNOWN) [Suspect]
     Active Substance: ADENOSINE
     Indication: VENTRICULAR TACHYCARDIA
     Route: 040
  2. LIDOCAINE. [Suspect]
     Active Substance: LIDOCAINE
     Indication: VENTRICULAR TACHYCARDIA
     Route: 040
  3. AMIODARONE [Suspect]
     Active Substance: AMIODARONE
     Indication: VENTRICULAR TACHYCARDIA
     Route: 040

REACTIONS (4)
  - Drug interaction [Recovering/Resolving]
  - Nodal arrhythmia [Recovering/Resolving]
  - Hypotension [Recovering/Resolving]
  - Dizziness [Recovering/Resolving]
